FAERS Safety Report 6249545-2 (Version None)
Quarter: 2009Q2

REPORT INFORMATION
  Report Type: 
  Country: None (occurrence: None)
  Receive Date: 20090629
  Receipt Date: 20090622
  Transmission Date: 20091009
  Serious: Yes (Other)
  Sender: FDA-Public Use
  Company Number: US-ELI_LILLY_AND_COMPANY-US200905004619

PATIENT
  Sex: Female

DRUGS (6)
  1. HUMALOG MIX 75/25 [Suspect]
     Indication: TYPE 2 DIABETES MELLITUS
     Dosage: 14 U, EACH MORNING
  2. HUMALOG MIX 75/25 [Suspect]
     Dosage: 6 U, EACH EVENING
  3. WELLBUTRIN [Concomitant]
     Dosage: 150 MG, 2/D
  4. LEVOTHYROXINE SODIUM [Concomitant]
     Indication: THYROID DISORDER
     Dosage: 100 UG, DAILY (1/D)
  5. COUMADIN [Concomitant]
     Dosage: 6 MG, DAILY (1/D)
  6. LISINOPRIL [Concomitant]
     Dosage: 5 MG, DAILY (1/D)

REACTIONS (3)
  - BACK INJURY [None]
  - FALL [None]
  - SURGICAL FAILURE [None]
